FAERS Safety Report 8475778-0 (Version None)
Quarter: 2012Q2

REPORT INFORMATION
  Report Type: 
  Country: None (occurrence: None)
  Receive Date: 20120628
  Receipt Date: 20120619
  Transmission Date: 20120825
  Serious: Yes (Other)
  Sender: FDA-Public Use
  Company Number: US-ASTRAZENECA-2012SE41367

PATIENT
  Age: 59 Year
  Sex: Male

DRUGS (1)
  1. NEXIUM [Suspect]
     Route: 048

REACTIONS (4)
  - OCULAR NEOPLASM [None]
  - CATARACT [None]
  - BLINDNESS [None]
  - EYE HAEMORRHAGE [None]
